FAERS Safety Report 8283577-8 (Version None)
Quarter: 2012Q2

REPORT INFORMATION
  Report Type: 
  Country: None (occurrence: None)
  Receive Date: 20120413
  Receipt Date: 20120406
  Transmission Date: 20120825
  Serious: Yes (Other)
  Sender: FDA-Public Use
  Company Number: GB-PFIZER INC-2012087267

PATIENT
  Age: 74 Year
  Sex: Female
  Weight: 60 kg

DRUGS (4)
  1. LIDOCAINE HYDROCHLORIDE [Suspect]
     Dosage: UNK
  2. LIDOCAINE HYDROCHLORIDE [Interacting]
     Dosage: 80 MG, UNKNOWN
  3. FLECAINIDE [Interacting]
     Indication: ATRIAL FIBRILLATION
  4. EPINEPHRINE [Concomitant]
     Dosage: UNK

REACTIONS (2)
  - DRUG INTERACTION [None]
  - CONVULSION [None]
